FAERS Safety Report 11230687 (Version 1)
Quarter: 2015Q3

REPORT INFORMATION
  Report Type: Spontaneous
  Country: CA (occurrence: CA)
  Receive Date: 20150701
  Receipt Date: 20150701
  Transmission Date: 20151125
  Serious: Yes (Hospitalization)
  Sender: FDA-Public Use
  Company Number: CA-JNJFOC-20150619921

PATIENT
  Sex: Female

DRUGS (1)
  1. INVOKANA [Suspect]
     Active Substance: CANAGLIFLOZIN
     Indication: TYPE 2 DIABETES MELLITUS
     Route: 065

REACTIONS (6)
  - Diabetic ketoacidosis [Unknown]
  - Vomiting [Unknown]
  - Dehydration [Unknown]
  - Acute kidney injury [Unknown]
  - Influenza like illness [Unknown]
  - Diarrhoea [Unknown]
